FAERS Safety Report 10370851 (Version 1)
Quarter: 2014Q3

REPORT INFORMATION
  Report Type: Spontaneous
  Country: US (occurrence: US)
  Receive Date: 20140808
  Receipt Date: 20140808
  Transmission Date: 20150326
  Serious: Yes (Other)
  Sender: FDA-Public Use
  Company Number: PHEH2014US015607

PATIENT
  Sex: Male

DRUGS (4)
  1. VALIUM [Concomitant]
     Active Substance: DIAZEPAM
     Dosage: UKN
  2. TOBRAMYCIN [Suspect]
     Active Substance: TOBRAMYCIN
     Dosage: UKN
     Route: 055
  3. TOBI PODHALER [Suspect]
     Active Substance: TOBRAMYCIN
     Dosage: UKN
  4. TOBI PODHALER [Suspect]
     Active Substance: TOBRAMYCIN
     Dosage: UKN

REACTIONS (4)
  - Heart rate increased [Unknown]
  - Drug intolerance [Unknown]
  - Aphonia [Unknown]
  - Erythema [Unknown]
